FAERS Safety Report 15424114 (Version 2)
Quarter: 2018Q3

REPORT INFORMATION
  Report Type: Spontaneous
  Country: NL (occurrence: NL)
  Receive Date: 20180925
  Receipt Date: 20180928
  Transmission Date: 20181010
  Serious: Yes (Hospitalization)
  Sender: FDA-Public Use
  Company Number: NL-ASTRAZENECA-2018SF20606

PATIENT
  Age: 23 Year
  Sex: Male

DRUGS (2)
  1. QUETIAPINE. [Suspect]
     Active Substance: QUETIAPINE
     Indication: POST-TRAUMATIC STRESS DISORDER
     Route: 048
  2. QUETIAPINE. [Suspect]
     Active Substance: QUETIAPINE
     Indication: POST-TRAUMATIC STRESS DISORDER
     Dosage: 20 TO 25 TABLETS 300 MG WITH A TOTAL OF 6000 TO 7500 MG.
     Route: 048

REACTIONS (13)
  - Overdose [Unknown]
  - Sinus tachycardia [Unknown]
  - Paranoia [Unknown]
  - Abdominal pain [Unknown]
  - Restlessness [Unknown]
  - Urinary retention [Unknown]
  - Toxicity to various agents [Unknown]
  - Delirium [Recovering/Resolving]
  - Miosis [Unknown]
  - Cardiac murmur [Unknown]
  - Akathisia [Unknown]
  - Off label use [Unknown]
  - Product use in unapproved indication [Unknown]
